FAERS Safety Report 17881160 (Version 1)
Quarter: 2020Q2

REPORT INFORMATION
  Report Type: Spontaneous
  Country: BR (occurrence: BR)
  Receive Date: 20200610
  Receipt Date: 20200610
  Transmission Date: 20200714
  Serious: Yes (Death)
  Sender: FDA-Public Use
  Company Number: NVSC2020BR160863

PATIENT
  Age: 32 Year
  Sex: Male

DRUGS (7)
  1. BEVACIZUMAB. [Suspect]
     Active Substance: BEVACIZUMAB
     Indication: GLIOBLASTOMA
     Dosage: IN THE LAST YEAR
     Route: 065
  2. COTRIMOXAZOLE [Suspect]
     Active Substance: SULFAMETHOXAZOLE\TRIMETHOPRIM
     Indication: GLIOBLASTOMA
     Dosage: UNK
     Route: 065
  3. DEXAMETHASONE. [Suspect]
     Active Substance: DEXAMETHASONE
     Indication: GLIOBLASTOMA
     Dosage: UNK
     Route: 065
  4. IRINOTECAN [Suspect]
     Active Substance: IRINOTECAN
     Indication: GLIOBLASTOMA
     Dosage: IN THE LAST YEAR
     Route: 065
  5. CLOBAZAM. [Suspect]
     Active Substance: CLOBAZAM
     Indication: GLIOBLASTOMA
     Dosage: UNK
     Route: 065
  6. OXCARBAZEPINE. [Suspect]
     Active Substance: OXCARBAZEPINE
     Indication: GLIOBLASTOMA
     Dosage: UNK
     Route: 065
  7. TEMOZOLOMIDE. [Suspect]
     Active Substance: TEMOZOLOMIDE
     Indication: GLIOBLASTOMA
     Dosage: IN THE FIRST 1.5 YEARS
     Route: 065

REACTIONS (6)
  - Back pain [Unknown]
  - Chest pain [Unknown]
  - Product use in unapproved indication [Unknown]
  - Glioblastoma [Fatal]
  - Malignant neoplasm progression [Fatal]
  - Musculoskeletal chest pain [Unknown]
